FAERS Safety Report 21099166 (Version 1)
Quarter: 2022Q3

REPORT INFORMATION
  Report Type: Spontaneous
  Country: FR (occurrence: None)
  Receive Date: 20220719
  Receipt Date: 20220719
  Transmission Date: 20221027
  Serious: Yes (Life-Threatening)
  Sender: FDA-Public Use
  Company Number: FR-ROCHE-3141972

PATIENT
  Sex: Male

DRUGS (8)
  1. RIVOTRIL [Suspect]
     Active Substance: CLONAZEPAM
     Indication: Epilepsy
     Dosage: EVERY 12 HOUR 2.5MG/ML 3 DROPS AT 8 AM + 7 M.
     Route: 048
     Dates: start: 20220507, end: 20220509
  2. TEGRETOL [Concomitant]
     Active Substance: CARBAMAZEPINE
     Dosage: 5 ML AT 9 AM AND 10 ML AT 7 PM
  3. LERCANIDIPINE [Concomitant]
     Active Substance: LERCANIDIPINE
     Dosage: MORNING
  4. SCOPOLAMINE [Concomitant]
     Active Substance: SCOPOLAMINE
  5. POTASSIUM BITARTRATE\SODIUM BICARBONATE [Concomitant]
     Active Substance: POTASSIUM BITARTRATE\SODIUM BICARBONATE
  6. CELESTENE [Concomitant]
  7. CEFTRIAXONE SODIUM [Concomitant]
     Active Substance: CEFTRIAXONE SODIUM
     Dates: start: 20220429
  8. FLAGYL [Concomitant]
     Active Substance: METRONIDAZOLE\METRONIDAZOLE HYDROCHLORIDE
     Dates: start: 20220430

REACTIONS (4)
  - Altered state of consciousness [Recovered/Resolved]
  - Oxygen saturation decreased [Recovered/Resolved]
  - Product prescribing error [Unknown]
  - Accidental overdose [Unknown]

NARRATIVE: CASE EVENT DATE: 20220507
